FAERS Safety Report 7867601-X (Version None)
Quarter: 2011Q4

REPORT INFORMATION
  Report Type: 
  Country: None (occurrence: None)
  Receive Date: 20111028
  Receipt Date: 20100311
  Transmission Date: 20120403
  Serious: No
  Sender: FDA-Public Use
  Company Number: US-BAYER-201016464NA

PATIENT
  Age: 68 Year
  Sex: Female

DRUGS (4)
  1. AVELOX [Suspect]
     Indication: PRODUCT USED FOR UNKNOWN INDICATION
     Dosage: 400 MG, QD
     Dates: end: 20100310
  2. ACTONEL [Concomitant]
  3. LABETALOL HCL [Concomitant]
  4. ZESTRIL [Concomitant]

REACTIONS (1)
  - CONTUSION [None]
